FAERS Safety Report 4936912-X (Version None)
Quarter: 2006Q1

REPORT INFORMATION
  Report Type: 
  Country: None (occurrence: None)
  Receive Date: 20060307
  Receipt Date: 20050414
  Transmission Date: 20060701
  Serious: Yes (Hospitalization, Disabling)
  Sender: FDA-Public Use
  Company Number: US-MERCK-0504USA02546

PATIENT
  Age: 34 Year
  Sex: Female
  Weight: 73 kg

DRUGS (2)
  1. VIOXX [Suspect]
     Indication: BURSITIS
     Route: 048
  2. VIOXX [Suspect]
     Indication: JOINT SPRAIN
     Route: 048

REACTIONS (4)
  - DRUG EXPOSURE DURING PREGNANCY [None]
  - GASTROINTESTINAL ULCER [None]
  - PRESCRIBED OVERDOSE [None]
  - TRANSIENT ISCHAEMIC ATTACK [None]
